FAERS Safety Report 8969643 (Version 2)
Quarter: 2013Q1

REPORT INFORMATION
  Report Type: Spontaneous
  Country: BR (occurrence: BR)
  Receive Date: 20121218
  Receipt Date: 20130313
  Transmission Date: 20140127
  Serious: No
  Sender: FDA-Public Use
  Company Number: PHHY2012BR115578

PATIENT
  Sex: Male
  Weight: 80 kg

DRUGS (3)
  1. RASILEZ AMLO [Suspect]
     Indication: HYPERTENSION
     Dosage: 1 DF (320 MG ALIS AND 10 MG AMLO), DAILY
     Route: 048
     Dates: start: 201211
  2. RASILEZ AMLO [Suspect]
     Dosage: 1 DF, (320 MG ALIS AND 5 MG AMLO)
     Route: 048
  3. ADALAT [Suspect]

REACTIONS (2)
  - Local swelling [Recovered/Resolved]
  - Blood pressure increased [Recovering/Resolving]
